FAERS Safety Report 23092637 (Version 1)
Quarter: 2023Q4

REPORT INFORMATION
  Report Type: Report from Study
  Country: US (occurrence: US)
  Receive Date: 20231021
  Receipt Date: 20231021
  Transmission Date: 20240109
  Serious: Yes (Hospitalization)
  Sender: FDA-Public Use
  Company Number: US-Accord-386113

PATIENT
  Age: 54 Year
  Sex: Female

DRUGS (1)
  1. CLOZAPINE [Suspect]
     Active Substance: CLOZAPINE
     Indication: Product used for unknown indication
     Dosage: 2 200MG AND 3 25MG TABLETS (TOTAL DOSE 475 MG)
     Route: 048

REACTIONS (2)
  - Mental disorder [Unknown]
  - Wrong technique in product usage process [Unknown]
